FAERS Safety Report 7275614-4 (Version None)
Quarter: 2011Q1

REPORT INFORMATION
  Report Type: 
  Country: None (occurrence: None)
  Receive Date: 20110204
  Receipt Date: 20110124
  Transmission Date: 20110831
  Serious: Yes (Hospitalization, Other)
  Sender: FDA-Public Use
  Company Number: FR-NOVOPROD-320211

PATIENT
  Age: 63 Year
  Sex: Female

DRUGS (8)
  1. VICTOZA [Suspect]
     Dosage: 1.2 MG, QD
     Route: 058
     Dates: start: 20100826, end: 20100828
  2. LASIX [Concomitant]
     Dosage: 40 MG, QD
     Route: 048
     Dates: start: 20100823, end: 20100908
  3. VICTOZA [Suspect]
     Indication: TYPE 2 DIABETES MELLITUS
     Dosage: 0.6 MG, QD
     Route: 065
     Dates: start: 20100101
  4. GALVUS [Concomitant]
  5. CRESTOR [Concomitant]
     Dosage: 10 MG, QD
     Route: 048
     Dates: start: 20100823, end: 20100908
  6. GLUCOPHAGE [Concomitant]
     Dosage: 2.55 G, QD
     Route: 048
     Dates: start: 20100823, end: 20100908
  7. APROVEL [Concomitant]
     Dosage: 150 MG, QD
     Route: 048
     Dates: start: 20100823, end: 20100908
  8. ALDACTONE [Concomitant]
     Dosage: 75 MG, QD
     Route: 048
     Dates: start: 20100823, end: 20100908

REACTIONS (2)
  - RENAL FAILURE [None]
  - VOMITING [None]
